FAERS Safety Report 7825549-0 (Version None)
Quarter: 2011Q4

REPORT INFORMATION
  Report Type: 
  Country: None (occurrence: None)
  Receive Date: 20111019
  Receipt Date: 20111014
  Transmission Date: 20120403
  Serious: Yes (Hospitalization, Other)
  Sender: FDA-Public Use
  Company Number: CZ-ABBOTT-11P-217-0843809-00

PATIENT
  Sex: Female
  Weight: 94 kg

DRUGS (2)
  1. PERINDOPRIL ERBUMINE [Concomitant]
     Indication: PRODUCT USED FOR UNKNOWN INDICATION
  2. HUMIRA [Suspect]
     Indication: PSORIATIC ARTHROPATHY
     Route: 058

REACTIONS (5)
  - BLADDER NECK SUSPENSION [None]
  - STRESS URINARY INCONTINENCE [None]
  - SURGERY [None]
  - VAGINAL DISORDER [None]
  - COMPLICATION OF DEVICE REMOVAL [None]
